FAERS Safety Report 11847903 (Version 1)
Quarter: 2015Q4

REPORT INFORMATION
  Report Type: Spontaneous
  Country: US (occurrence: US)
  Receive Date: 20151217
  Receipt Date: 20151217
  Transmission Date: 20160305
  Serious: Yes (Hospitalization)
  Sender: FDA-Public Use
  Company Number: US-FRESENIUS KABI-FK201506631

PATIENT
  Age: 55 Year
  Sex: Male

DRUGS (8)
  1. CYTARABINE (MANUFACTURER UNKNOWN) [Suspect]
     Active Substance: CYTARABINE
     Indication: ACUTE MYELOID LEUKAEMIA
     Route: 037
  2. VINCRISTINE [Concomitant]
     Active Substance: VINCRISTINE
     Indication: ACUTE MYELOID LEUKAEMIA
  3. CYCLOPHOSPHAMIDE. [Concomitant]
     Active Substance: CYCLOPHOSPHAMIDE
     Indication: ACUTE MYELOID LEUKAEMIA
  4. CYTARABINE (MANUFACTURER UNKNOWN) [Suspect]
     Active Substance: CYTARABINE
     Indication: BURKITT^S LYMPHOMA
  5. METHOTREXATE (MANUFACTURER UNKNOWN) [Suspect]
     Active Substance: METHOTREXATE
     Indication: ACUTE MYELOID LEUKAEMIA
     Route: 037
  6. DEXAMETHASONE. [Concomitant]
     Active Substance: DEXAMETHASONE
     Indication: ACUTE MYELOID LEUKAEMIA
  7. METHOTREXATE (MANUFACTURER UNKNOWN) [Suspect]
     Active Substance: METHOTREXATE
     Indication: BURKITT^S LYMPHOMA
  8. DOXORUBICIN [Concomitant]
     Active Substance: DOXORUBICIN
     Indication: ACUTE MYELOID LEUKAEMIA

REACTIONS (1)
  - Myelopathy [Recovering/Resolving]
